FAERS Safety Report 22967359 (Version 6)
Quarter: 2023Q4

REPORT INFORMATION
  Report Type: Spontaneous
  Country: US (occurrence: US)
  Receive Date: 20230921
  Receipt Date: 20231121
  Transmission Date: 20240110
  Serious: Yes (Hospitalization)
  Sender: FDA-Public Use
  Company Number: US-PFIZER INC-PV202300158628

PATIENT
  Age: 60 Year
  Sex: Female

DRUGS (1)
  1. IBRANCE [Suspect]
     Active Substance: PALBOCICLIB
     Dosage: UNK

REACTIONS (12)
  - Chest pain [Unknown]
  - Bone pain [Unknown]
  - Dyspnoea exertional [Unknown]
  - Fatigue [Unknown]
  - Decreased appetite [Unknown]
  - Pruritus [Unknown]
  - Increased tendency to bruise [Unknown]
  - Infusion related reaction [Unknown]
  - Diarrhoea [Unknown]
  - Fatigue [Unknown]
  - Nervousness [Unknown]
  - Asthenia [Unknown]
